FAERS Safety Report 12144437 (Version 1)
Quarter: 2016Q1

REPORT INFORMATION
  Report Type: Spontaneous
  Country: US (occurrence: None)
  Receive Date: 20160303
  Receipt Date: 20160303
  Transmission Date: 20160526
  Serious: Yes (Other)
  Sender: FDA-Public Use
  Company Number: None

PATIENT
  Age: 28 Year
  Sex: Female
  Weight: 95.26 kg

DRUGS (7)
  1. CALCIUM [Concomitant]
     Active Substance: CALCIUM
  2. LAMOTRIGINE 25MG NORTH [Suspect]
     Active Substance: LAMOTRIGINE
     Indication: AFFECTIVE DISORDER
     Route: 048
     Dates: start: 20160223, end: 20160226
  3. SERTRALINE [Concomitant]
     Active Substance: SERTRALINE HYDROCHLORIDE
  4. VITAMIN C [Concomitant]
     Active Substance: ASCORBIC ACID
  5. TRAZODONE [Concomitant]
     Active Substance: TRAZODONE HYDROCHLORIDE
  6. MULTI VITAMINS [Concomitant]
  7. VITAMIN D [Concomitant]
     Active Substance: CHOLECALCIFEROL

REACTIONS (3)
  - Speech disorder [None]
  - Swollen tongue [None]
  - Dysphagia [None]

NARRATIVE: CASE EVENT DATE: 20160225
